FAERS Safety Report 7661874-4 (Version None)
Quarter: 2011Q3

REPORT INFORMATION
  Report Type: 
  Country: None (occurrence: None)
  Receive Date: 20110805
  Receipt Date: 20101214
  Transmission Date: 20111222
  Serious: No
  Sender: FDA-Public Use
  Company Number: US-ABBOTT-10P-163-0691440-00

PATIENT
  Sex: Male

DRUGS (3)
  1. HEART MEDICATION [Concomitant]
     Indication: PRODUCT USED FOR UNKNOWN INDICATION
  2. ASPIRIN [Concomitant]
     Indication: CARDIAC DISORDER
  3. NIASPAN [Suspect]
     Indication: HYPERLIPIDAEMIA

REACTIONS (2)
  - FLUSHING [None]
  - PRURITUS [None]
